APPROVED DRUG PRODUCT: LETAIRIS
Active Ingredient: AMBRISENTAN
Strength: 5MG
Dosage Form/Route: TABLET;ORAL
Application: N022081 | Product #001 | TE Code: AB
Applicant: GILEAD SCIENCES INC
Approved: Jun 15, 2007 | RLD: Yes | RS: No | Type: RX

PATENTS:
Patent 9474752 | Expires: Dec 11, 2027
Patent 8377933 | Expires: Dec 11, 2027
Patent 9549926 | Expires: Oct 14, 2031